FAERS Safety Report 21104590 (Version 3)
Quarter: 2022Q3

REPORT INFORMATION
  Report Type: Spontaneous
  Country: AU (occurrence: AU)
  Receive Date: 20220720
  Receipt Date: 20220819
  Transmission Date: 20221027
  Serious: Yes (Hospitalization, Other)
  Sender: FDA-Public Use
  Company Number: AU-MYLANLABS-2022M1078679

PATIENT
  Age: 59 Year
  Sex: Male

DRUGS (16)
  1. CLOZARIL [Suspect]
     Active Substance: CLOZAPINE
     Indication: Schizophrenia
     Dosage: 425 MILLIGRAM, QD (100MG MANE + 325MG NOCTE)
     Route: 065
     Dates: start: 2011, end: 20220714
  2. CLOZARIL [Suspect]
     Active Substance: CLOZAPINE
     Dosage: 425 MILLIGRAM
     Route: 048
     Dates: start: 20191120
  3. ZUCLOPENTHIXOL DECANOATE [Concomitant]
     Active Substance: ZUCLOPENTHIXOL DECANOATE
     Indication: Schizophrenia
     Dosage: 550 MILLIGRAM, Q3W (EVERY 3 WEEKS)
     Route: 065
     Dates: start: 20200911
  4. BENZTROPINE [Concomitant]
     Active Substance: BENZTROPINE
     Indication: Withdrawal syndrome
     Dosage: 2 MILLIGRAM, AM (2MG MANE)
     Route: 065
     Dates: start: 20200911
  5. BENZTROPINE [Concomitant]
     Active Substance: BENZTROPINE
     Indication: Salivary hypersecretion
     Dosage: 2 MILLIGRAM, QD (2MG MIDDAY)
     Route: 065
     Dates: start: 20220728
  6. ATORVASTATIN [Concomitant]
     Active Substance: ATORVASTATIN
     Indication: Blood cholesterol increased
     Dosage: 20 MILLIGRAM, PM (20MG NOCTE)
     Route: 065
     Dates: start: 20210816
  7. DENOSUMAB [Concomitant]
     Active Substance: DENOSUMAB
     Indication: Osteoporosis
     Dosage: 60 MILLIGRAM, 6 MONTHLY
     Route: 065
     Dates: start: 20201110
  8. FENOFIBRATE [Concomitant]
     Active Substance: FENOFIBRATE
     Indication: Blood cholesterol increased
     Dosage: 145 MILLIGRAM, AM (MANE)
     Route: 065
     Dates: start: 20210816
  9. VALPROATE SODIUM [Concomitant]
     Active Substance: VALPROATE SODIUM
     Indication: Affective disorder
     Dosage: 600 MILLIGRAM, BID
     Route: 065
     Dates: start: 20211119
  10. THIAMINE [Concomitant]
     Active Substance: THIAMINE
     Indication: Malnutrition
     Dosage: 100 MILLIGRAM, QD (100 MG OD)
     Route: 065
     Dates: start: 20200911
  11. OLODATEROL\TIOTROPIUM [Concomitant]
     Active Substance: OLODATEROL\TIOTROPIUM
     Indication: Chronic obstructive pulmonary disease
     Dosage: 2 DOSAGE FORM, AM (2 PUFFS MANE)
     Route: 065
     Dates: start: 20211119
  12. MAGNESIUM [Concomitant]
     Active Substance: MAGNESIUM
     Indication: Supplementation therapy
     Dosage: 500 MILLIGRAM, PM (500 MG NOCTE)
     Route: 065
     Dates: start: 20210920
  13. VITAMIN C [Concomitant]
     Active Substance: ASCORBIC ACID
     Indication: Supplementation therapy
     Dosage: 1 DOSAGE FORM, AM (1 DOSAGE FORM MANE)
     Route: 065
     Dates: start: 20210920
  14. PANTOPRAZOLE [Concomitant]
     Active Substance: PANTOPRAZOLE
     Indication: Gastrooesophageal reflux disease
     Dosage: 20 MILLIGRAM, AM
     Route: 065
     Dates: start: 20210920
  15. NICOTINE [Concomitant]
     Active Substance: NICOTINE
     Indication: Smoking cessation therapy
     Dosage: 21 MILLIGRAM, QD (21 MG OD)
     Route: 065
     Dates: start: 20220221
  16. VITAMIN D [Concomitant]
     Active Substance: VITAMIN D NOS
     Indication: Vitamin D decreased
     Dosage: 25 MICROGRAM, QD
     Route: 065
     Dates: start: 20210909

REACTIONS (8)
  - Hospitalisation [Unknown]
  - Neutropenia [Recovered/Resolved]
  - Haemoglobin decreased [Not Recovered/Not Resolved]
  - White blood cell count increased [Recovered/Resolved]
  - Haematocrit decreased [Not Recovered/Not Resolved]
  - Red blood cell count decreased [Not Recovered/Not Resolved]
  - Neutrophil count increased [Recovered/Resolved]
  - Monocyte count increased [Recovered/Resolved]

NARRATIVE: CASE EVENT DATE: 20220517
